FAERS Safety Report 9210489 (Version 2)
Quarter: 2013Q4

REPORT INFORMATION
  Report Type: Spontaneous
  Country: US (occurrence: US)
  Receive Date: 20130404
  Receipt Date: 20131209
  Transmission Date: 20140711
  Serious: Yes (Other)
  Sender: FDA-Public Use
  Company Number: US-BAYER-2013-040131

PATIENT
  Age: 44 Year
  Sex: Female

DRUGS (5)
  1. YAZ [Suspect]
     Dosage: UNK
     Dates: start: 200805, end: 201002
  2. YASMIN [Suspect]
     Dosage: UNK
     Dates: start: 200805, end: 201002
  3. CIPROFLOXACIN HCL [Concomitant]
     Dosage: 500 MG, UNK
  4. DIPHENOXYLATE W/ATROPINE SULFATE [Concomitant]
     Dosage: UNK
  5. COLESTIPOL HYDROCHLORIDE [Concomitant]
     Dosage: 1 G, UNK

REACTIONS (7)
  - Cholelithiasis [None]
  - Cholecystitis chronic [None]
  - Injury [None]
  - Pain [None]
  - Emotional distress [None]
  - Anxiety [None]
  - Psychological trauma [None]
